FAERS Safety Report 8995543 (Version 1)
Quarter: 2013Q1

REPORT INFORMATION
  Report Type: Spontaneous
  Country: US (occurrence: US)
  Receive Date: 20130103
  Receipt Date: 20130103
  Transmission Date: 20140127
  Serious: No
  Sender: FDA-Public Use
  Company Number: US-ABBOTT-12P-163-0901237-00

PATIENT
  Sex: Female
  Weight: 68.1 kg

DRUGS (2)
  1. SYNTHROID [Suspect]
     Indication: HYPOTHYROIDISM
     Route: 048
     Dates: start: 1988, end: 201201
  2. SYNTHROID [Suspect]
     Route: 048
     Dates: start: 201201

REACTIONS (7)
  - Chest pain [Recovered/Resolved]
  - Headache [Recovered/Resolved]
  - Drug effect decreased [Not Recovered/Not Resolved]
  - Menstruation irregular [Not Recovered/Not Resolved]
  - Intentional drug misuse [None]
  - Blood thyroid stimulating hormone decreased [Unknown]
  - Incorrect dose administered [Unknown]
